FAERS Safety Report 13087184 (Version 1)
Quarter: 2017Q1

REPORT INFORMATION
  Report Type: Report from Study
  Country: None (occurrence: IT)
  Receive Date: 20170105
  Receipt Date: 20170105
  Transmission Date: 20170428
  Serious: Yes (Death)
  Sender: FDA-Public Use
  Company Number: IT-ABBVIE-17K-083-1827436-00

PATIENT
  Age: 83 Year
  Sex: Female
  Weight: 75 kg

DRUGS (1)
  1. DUODOPA [Suspect]
     Active Substance: CARBIDOPA\LEVODOPA
     Indication: PARKINSON^S DISEASE
     Dosage: MD 4.0 +3, CR 4.4, ED 2.2
     Route: 050
     Dates: start: 20150309, end: 20170102

REACTIONS (3)
  - Cardiac arrest [Fatal]
  - Respiratory tract infection [Fatal]
  - Renal failure [Fatal]

NARRATIVE: CASE EVENT DATE: 201612
